FAERS Safety Report 9415596 (Version 1)
Quarter: 2013Q3

REPORT INFORMATION
  Report Type: Spontaneous
  Country: US (occurrence: US)
  Receive Date: 20130723
  Receipt Date: 20130723
  Transmission Date: 20140515
  Serious: Yes (Disabling)
  Sender: FDA-Public Use
  Company Number: US-ASTRAZENECA-2013SE52526

PATIENT
  Age: 61 Year
  Sex: Male
  Weight: 147.4 kg

DRUGS (5)
  1. CRESTOR [Suspect]
     Indication: CARDIAC DISORDER
     Route: 048
  2. CHLORTHALIDONE [Suspect]
     Indication: BLOOD PRESSURE ABNORMAL
     Route: 048
  3. LYRICA [Suspect]
     Indication: DIABETIC NEUROPATHY
     Route: 048
  4. GABAPENTIN [Suspect]
     Indication: DIABETIC NEUROPATHY
     Route: 065
  5. PROAIR HFA [Suspect]
     Indication: DYSPNOEA
     Route: 065

REACTIONS (4)
  - Back injury [Unknown]
  - Nerve injury [Unknown]
  - Abdominal discomfort [Unknown]
  - Drug ineffective [Unknown]
